FAERS Safety Report 10068945 (Version 1)
Quarter: 2014Q2

REPORT INFORMATION
  Report Type: Other
  Country: US (occurrence: US)
  Receive Date: 20140409
  Receipt Date: 20140409
  Transmission Date: 20141212
  Serious: Yes (Hospitalization, Other)
  Sender: FDA-Public Use
  Company Number: US-BRISTOL-MYERS SQUIBB COMPANY-20604583

PATIENT
  Age: 43 Year
  Sex: Female

DRUGS (5)
  1. METFORMIN HCL [Suspect]
     Route: 048
  2. TRASTUZUMAB [Suspect]
     Indication: METASTASES TO MENINGES
     Dosage: CYCLIC
     Route: 042
  3. METOPROLOL TARTRATE [Concomitant]
     Route: 048
  4. METOCLOPRAMIDE [Concomitant]
     Route: 048
  5. SIMVASTATIN [Concomitant]
     Route: 048

REACTIONS (8)
  - Ataxia [Unknown]
  - Headache [Unknown]
  - Asthenia [Unknown]
  - Paraesthesia [Unknown]
  - Aphasia [Unknown]
  - Meningitis aseptic [Unknown]
  - Decreased appetite [Unknown]
  - Vomiting [Unknown]
